FAERS Safety Report 4448480-X (Version None)
Quarter: 2004Q3

REPORT INFORMATION
  Report Type: 
  Country: None (occurrence: None)
  Receive Date: 20040909
  Receipt Date: 20040909
  Transmission Date: 20050211
  Serious: Yes (Other)
  Sender: FDA-Public Use
  Company Number: None

PATIENT
  Age: 43 Year
  Sex: Female
  Weight: 85 kg

DRUGS (35)
  1. DENILEUKIN DIFTITOX 300 MCG / 2 ML SERAGEN, INC. / LIGAND [Suspect]
     Indication: DRUG RESISTANCE
     Dosage: 4.5 MCG/KG DAILY X 5 INTRAVENOUS
     Route: 042
     Dates: start: 20040830, end: 20040902
  2. DENILEUKIN DIFTITOX 300 MCG / 2 ML SERAGEN, INC. / LIGAND [Suspect]
     Indication: GRAFT VERSUS HOST DISEASE
     Dosage: 4.5 MCG/KG DAILY X 5 INTRAVENOUS
     Route: 042
     Dates: start: 20040830, end: 20040902
  3. DENILEUKIN DIFTITOX 300 MCG / 2 ML SERAGEN, INC. / LIGAND [Suspect]
     Indication: DRUG RESISTANCE
     Dosage: 9 MCG/KG ONCE A WEEK X 4 INTRAVENOUS
     Route: 042
     Dates: start: 20040805, end: 20040806
  4. DENILEUKIN DIFTITOX 300 MCG / 2 ML SERAGEN, INC. / LIGAND [Suspect]
     Indication: GRAFT VERSUS HOST DISEASE
     Dosage: 9 MCG/KG ONCE A WEEK X 4 INTRAVENOUS
     Route: 042
     Dates: start: 20040805, end: 20040806
  5. ACYCLOVIR [Concomitant]
  6. AMLODIPINE BESYLATE [Concomitant]
  7. ACETAMINOPHEN [Concomitant]
  8. CEFEPINE HCL [Concomitant]
  9. CHLOROPROMAZINE HCL [Concomitant]
  10. CHLORHEXIDINE GLUCONATE [Concomitant]
  11. CLONAZEPAM [Concomitant]
  12. CHLORHEXIDINE GLUCONATE [Concomitant]
  13. CLONAZEPAM [Concomitant]
  14. DAPSONE [Concomitant]
  15. DICYCLOMINE HCL INJ [Concomitant]
  16. DOLASETRON MESYLATE [Concomitant]
  17. DIPHENHYDRAMINE HCL [Concomitant]
  18. GUAIFENESIN [Concomitant]
  19. HEPARIN SODIUM [Concomitant]
  20. INSULIN ASPART [Concomitant]
  21. LOPERAMIDE HCL [Concomitant]
  22. MAGNESIUM SULFATE 8% [Concomitant]
  23. MEROPENEM [Concomitant]
  24. METFORMIN HCL [Concomitant]
  25. MAG. HYDROX./AL. HYDROX [Concomitant]
  26. MIRTAZAPPINE [Concomitant]
  27. MORPHINE SULFATE [Concomitant]
  28. M.V.I. [Concomitant]
  29. ONDANSETRON [Concomitant]
  30. PROMETHAZINE HCL [Concomitant]
  31. POTASSIUM CHLORIDE [Concomitant]
  32. SERTRALINE HCL [Concomitant]
  33. TACROLIMUS ANHYDROUS [Concomitant]
  34. VORICONAZOLE [Concomitant]
  35. ZOLPIDEM TARTRATE [Concomitant]

REACTIONS (6)
  - ABSCESS [None]
  - BACTERIAL INFECTION [None]
  - DEPRESSED LEVEL OF CONSCIOUSNESS [None]
  - HYPOTENSION [None]
  - LETHARGY [None]
  - SEPSIS [None]
